FAERS Safety Report 25528785 (Version 1)
Quarter: 2025Q3

REPORT INFORMATION
  Report Type: Spontaneous
  Country: JP (occurrence: JP)
  Receive Date: 20250708
  Receipt Date: 20250708
  Transmission Date: 20251020
  Serious: Yes (Other)
  Sender: Norvium Bioscience
  Company Number: JP-Norvium Bioscience LLC-080356

PATIENT
  Age: 56 Year
  Sex: Female

DRUGS (1)
  1. HEPARIN SODIUM [Suspect]
     Active Substance: HEPARIN SODIUM
     Indication: Pulmonary embolism

REACTIONS (2)
  - Heparin-induced thrombocytopenia [Unknown]
  - Parietal lobe stroke [Unknown]
